FAERS Safety Report 18597995 (Version 4)
Quarter: 2023Q2

REPORT INFORMATION
  Report Type: Report from Study
  Country: JP (occurrence: JP)
  Receive Date: 20201210
  Receipt Date: 20230602
  Transmission Date: 20230722
  Serious: Yes (Hospitalization)
  Sender: FDA-Public Use
  Company Number: JP-ABBVIE-20K-087-3587181-00

PATIENT
  Age: 58 Year
  Sex: Male

DRUGS (2)
  1. CARBIDOPA\LEVODOPA [Suspect]
     Active Substance: CARBIDOPA\LEVODOPA
     Indication: Parkinson^s disease
     Route: 050
     Dates: start: 20200828
  2. CARBIDOPA\LEVODOPA [Suspect]
     Active Substance: CARBIDOPA\LEVODOPA

REACTIONS (7)
  - Gastric haemorrhage [Unknown]
  - Blood uric acid abnormal [Unknown]
  - Gastric ulcer [Unknown]
  - Embedded device [Unknown]
  - Stoma site extravasation [Unknown]
  - Stoma site discharge [Unknown]
  - Protein urine present [Unknown]

NARRATIVE: CASE EVENT DATE: 20200101
